FAERS Safety Report 5869836-4 (Version None)
Quarter: 2008Q3

REPORT INFORMATION
  Report Type: 
  Country: None (occurrence: None)
  Receive Date: 20080904
  Receipt Date: 20080826
  Transmission Date: 20090109
  Serious: Yes (Other)
  Sender: FDA-Public Use
  Company Number: US-PFIZER INC-2008071820

PATIENT
  Sex: Female
  Weight: 65.454 kg

DRUGS (10)
  1. XALATAN [Suspect]
     Indication: INTRAOCULAR PRESSURE TEST
     Route: 047
  2. LUNESTA [Concomitant]
  3. GLYBURIDE [Concomitant]
  4. LEVOXYL [Concomitant]
  5. NEXIUM [Concomitant]
  6. MONTELUKAST SODIUM [Concomitant]
  7. METFORMIN HCL [Concomitant]
  8. VITAMIN TAB [Concomitant]
  9. ASCORBIC ACID [Concomitant]
  10. CALCIUM [Concomitant]

REACTIONS (4)
  - FURUNCLE [None]
  - HEADACHE [None]
  - NAUSEA [None]
  - PELVIC FRACTURE [None]
